FAERS Safety Report 6633155-9 (Version None)
Quarter: 2010Q1

REPORT INFORMATION
  Report Type: 
  Country: None (occurrence: None)
  Receive Date: 20100312
  Receipt Date: 20100302
  Transmission Date: 20100710
  Serious: Yes (Other)
  Sender: FDA-Public Use
  Company Number: CA-PFIZER INC-2010031941

PATIENT
  Age: 44 Year

DRUGS (3)
  1. FLUCONAZOLE [Suspect]
     Indication: MENINGITIS CRYPTOCOCCAL
     Dosage: 600MG /DAY
  2. ITRACONAZOLE [Concomitant]
  3. VORICONAZOLE [Concomitant]

REACTIONS (2)
  - MENINGITIS CRYPTOCOCCAL [None]
  - TREATMENT FAILURE [None]
